FAERS Safety Report 13096813 (Version 1)
Quarter: 2017Q1

REPORT INFORMATION
  Report Type: Report from Study
  Country: IT (occurrence: IT)
  Receive Date: 20170109
  Receipt Date: 20170109
  Transmission Date: 20170428
  Serious: Yes (Other)
  Sender: FDA-Public Use
  Company Number: IT-TEVA-726685ACC

PATIENT
  Age: 74 Year
  Sex: Female

DRUGS (8)
  1. DIBASE [Concomitant]
     Active Substance: CHOLECALCIFEROL
  2. METFONORM [Concomitant]
     Active Substance: METFORMIN HYDROCHLORIDE
  3. LEXOTAN [Concomitant]
     Active Substance: BROMAZEPAM
  4. TRIATEC [Concomitant]
     Active Substance: RAMIPRIL
  5. LIMPIDEX - 15 MG CAPSULE RIGIDE [Concomitant]
     Indication: PROPHYLAXIS AGAINST GASTROINTESTINAL ULCER
     Route: 048
  6. INDERAL [Concomitant]
     Active Substance: PROPRANOLOL HYDROCHLORIDE
  7. AMOXICILLIN + CLAVULANIC ACID [Suspect]
     Active Substance: AMOXICILLIN\CLAVULANIC ACID
     Indication: CYST
     Route: 048
     Dates: start: 20161212, end: 20161212
  8. SINVACOR - 10 MG COMPRESSE RIVESTITE CON FILM [Concomitant]
     Indication: DYSLIPIDAEMIA
     Route: 048

REACTIONS (3)
  - Respiratory fatigue [Unknown]
  - Feeling hot [Unknown]
  - Flushing [Unknown]

NARRATIVE: CASE EVENT DATE: 20161212
